FAERS Safety Report 6728763-0 (Version None)
Quarter: 2010Q2

REPORT INFORMATION
  Report Type: 
  Country: None (occurrence: None)
  Receive Date: 20100517
  Receipt Date: 20100504
  Transmission Date: 20101027
  Serious: Yes (Other)
  Sender: FDA-Public Use
  Company Number: US-JNJFOC-20100503186

PATIENT
  Age: 4 Year
  Sex: Female

DRUGS (2)
  1. CHILDREN'S TYLENOL [Suspect]
     Route: 065
  2. CHILDREN'S TYLENOL [Suspect]
     Indication: DRUG USE FOR UNKNOWN INDICATION
     Route: 065

REACTIONS (3)
  - MALAISE [None]
  - PRODUCT QUALITY ISSUE [None]
  - PYREXIA [None]
